FAERS Safety Report 12160905 (Version 1)
Quarter: 2016Q1

REPORT INFORMATION
  Report Type: Spontaneous
  Country: US (occurrence: US)
  Receive Date: 20160308
  Receipt Date: 20160308
  Transmission Date: 20160526
  Serious: Yes (Other)
  Sender: FDA-Public Use
  Company Number: US-JNJFOC-20160301946

PATIENT

DRUGS (5)
  1. SILTUXIMAB [Suspect]
     Active Substance: SILTUXIMAB
     Indication: PLASMA CELL MYELOMA
     Dosage: DAY 1
     Route: 042
  2. LENALIDOMIDE [Suspect]
     Active Substance: LENALIDOMIDE
     Indication: PLASMA CELL MYELOMA
     Dosage: ON DAYS 1-14, FOLLOWED BY 7 DAYS OF REST EVERY 21 DAYS
     Route: 048
  3. DEXAMETHASONE. [Suspect]
     Active Substance: DEXAMETHASONE
     Indication: PLASMA CELL MYELOMA
     Dosage: ON DAYS 1, 2, 4, 5, 8, 9, 11 AND 12
     Route: 048
  4. BORTEZOMIB [Suspect]
     Active Substance: BORTEZOMIB
     Indication: PLASMA CELL MYELOMA
     Dosage: ON DAYS 1, 4, 8 AND 11
     Route: 058
  5. SILTUXIMAB [Suspect]
     Active Substance: SILTUXIMAB
     Indication: PLASMA CELL MYELOMA
     Route: 042

REACTIONS (31)
  - Leukopenia [Unknown]
  - Neutropenia [Unknown]
  - Vomiting [Unknown]
  - Dyspnoea [Unknown]
  - Upper respiratory tract infection [Unknown]
  - Dysgeusia [Unknown]
  - Insomnia [Unknown]
  - Constipation [Unknown]
  - Dizziness [Unknown]
  - Stomatitis [Unknown]
  - Leukocytosis [Unknown]
  - Myalgia [Unknown]
  - Dyspepsia [Unknown]
  - Paraesthesia [Unknown]
  - Nausea [Unknown]
  - Peripheral sensory neuropathy [Unknown]
  - Thrombocytopenia [Unknown]
  - Pain in extremity [Unknown]
  - Rash maculo-papular [Unknown]
  - Oedema peripheral [Unknown]
  - Dehydration [Unknown]
  - Anaemia [Unknown]
  - Fatigue [Unknown]
  - Fracture [Unknown]
  - Vision blurred [Unknown]
  - Pain [Unknown]
  - Furuncle [Unknown]
  - Lymphopenia [Unknown]
  - Diarrhoea [Unknown]
  - Hypersensitivity [Unknown]
  - Back pain [Unknown]
